FAERS Safety Report 6519596-9 (Version None)
Quarter: 2009Q4

REPORT INFORMATION
  Report Type: 
  Country: None (occurrence: None)
  Receive Date: 20091228
  Receipt Date: 20091214
  Transmission Date: 20100525
  Serious: Yes (Other)
  Sender: FDA-Public Use
  Company Number: US-MYLANLABS-2009S1021317

PATIENT
  Age: 60 Year
  Sex: Male

DRUGS (5)
  1. LISINOPRIL [Suspect]
  2. NAPROXEN [Suspect]
  3. AMLODIPINE [Concomitant]
  4. CLOPIDOGREL [Concomitant]
  5. RANITIDINE [Concomitant]

REACTIONS (13)
  - ABDOMINAL DISCOMFORT [None]
  - BLOOD AMYLASE INCREASED [None]
  - CARBON DIOXIDE DECREASED [None]
  - DIARRHOEA [None]
  - DYSPNOEA [None]
  - ELECTROCARDIOGRAM QRS COMPLEX PROLONGED [None]
  - HYPERKALAEMIA [None]
  - LIPASE INCREASED [None]
  - NAUSEA [None]
  - PARALYSIS [None]
  - RENAL FAILURE CHRONIC [None]
  - VOMITING [None]
  - WHITE BLOOD CELL COUNT INCREASED [None]
